FAERS Safety Report 6688597-2 (Version None)
Quarter: 2010Q2

REPORT INFORMATION
  Report Type: 
  Country: None (occurrence: None)
  Receive Date: 20100420
  Receipt Date: 20100408
  Transmission Date: 20101027
  Serious: Yes (Other)
  Sender: FDA-Public Use
  Company Number: FR-PFIZER INC-2010044371

PATIENT
  Sex: Female

DRUGS (1)
  1. LYRICA [Suspect]
     Dosage: UNK

REACTIONS (5)
  - DRY MOUTH [None]
  - EYE PAIN [None]
  - GENITAL HAEMORRHAGE [None]
  - HYPERHIDROSIS [None]
  - TACHYCARDIA [None]
